FAERS Safety Report 22364331 (Version 1)
Quarter: 2023Q2

REPORT INFORMATION
  Report Type: Spontaneous
  Country: US (occurrence: US)
  Receive Date: 20230525
  Receipt Date: 20230525
  Transmission Date: 20230722
  Serious: No
  Sender: FDA-Public Use
  Company Number: US-UCBSA-2023000046

PATIENT
  Sex: Male

DRUGS (1)
  1. CIMZIA [Suspect]
     Active Substance: CERTOLIZUMAB PEGOL
     Indication: Psoriatic arthropathy
     Dosage: 400 MILLIGRAM, EV 4 WEEKS
     Route: 058
     Dates: start: 202207

REACTIONS (7)
  - Erythema [Unknown]
  - Pruritus [Unknown]
  - Skin burning sensation [Unknown]
  - Abdominal pain upper [Unknown]
  - Diarrhoea [Unknown]
  - Sensitive skin [Unknown]
  - Drug ineffective [Unknown]
